FAERS Safety Report 15964969 (Version 1)
Quarter: 2019Q1

REPORT INFORMATION
  Report Type: Spontaneous
  Country: IT (occurrence: IT)
  Receive Date: 20190215
  Receipt Date: 20190215
  Transmission Date: 20190418
  Serious: Yes (Other)
  Sender: FDA-Public Use
  Company Number: IT-ACCORD-107435

PATIENT
  Age: 60 Year
  Sex: Male

DRUGS (6)
  1. URBASON [Concomitant]
     Active Substance: METHYLPREDNISOLONE
  2. TACNI [Suspect]
     Active Substance: TACROLIMUS
     Indication: PRODUCT USED FOR UNKNOWN INDICATION
     Dosage: ALSO RECEIVED SECOND TIME AS SUSPECT.
  3. METOPROLOL. [Concomitant]
     Active Substance: METOPROLOL
  4. LANSOX [Concomitant]
     Active Substance: LANSOPRAZOLE
  5. ATORVASTATIN/ATORVASTATIN CALCIUM [Suspect]
     Active Substance: ATORVASTATIN CALCIUM
     Indication: PRODUCT USED FOR UNKNOWN INDICATION
  6. ZYLORIC [Concomitant]
     Active Substance: ALLOPURINOL

REACTIONS (1)
  - Chest discomfort [Recovering/Resolving]

NARRATIVE: CASE EVENT DATE: 20180527
